FAERS Safety Report 9444771 (Version 1)
Quarter: 2013Q3

REPORT INFORMATION
  Report Type: Spontaneous
  Country: JP (occurrence: JP)
  Receive Date: 20130807
  Receipt Date: 20130807
  Transmission Date: 20140515
  Serious: Yes (Other)
  Sender: FDA-Public Use
  Company Number: JP-ASTELLAS-2013JP008206

PATIENT
  Age: 63 Year
  Sex: Male

DRUGS (1)
  1. BETANIS [Suspect]
     Indication: DYSURIA
     Dosage: 50 MG, UNKNOWN/D
     Route: 048
     Dates: start: 20130726

REACTIONS (1)
  - Aphagia [Unknown]
